FAERS Safety Report 23960599 (Version 1)
Quarter: 2024Q2

REPORT INFORMATION
  Report Type: Spontaneous
  Country: JP (occurrence: JP)
  Receive Date: 20240611
  Receipt Date: 20240611
  Transmission Date: 20240716
  Serious: Yes (Other)
  Sender: FDA-Public Use
  Company Number: JP-BAYER-2024A056909

PATIENT
  Age: 80 Year
  Sex: Male

DRUGS (5)
  1. KERENDIA [Suspect]
     Active Substance: FINERENONE
     Indication: Type 2 diabetes mellitus
     Dosage: 10MG
     Route: 048
     Dates: start: 20240213, end: 202403
  2. KERENDIA [Suspect]
     Active Substance: FINERENONE
     Indication: Chronic kidney disease
  3. KERENDIA [Suspect]
     Active Substance: FINERENONE
     Indication: Type 2 diabetes mellitus
     Dosage: 20MG
     Route: 048
     Dates: start: 202403
  4. KERENDIA [Suspect]
     Active Substance: FINERENONE
     Indication: Chronic kidney disease
  5. LOXOPROFEN SODIUM [Suspect]
     Active Substance: LOXOPROFEN SODIUM
     Dosage: EVERY DAY
     Route: 048

REACTIONS (3)
  - Hyperkalaemia [Recovering/Resolving]
  - Nephropathy toxic [None]
  - Glomerular filtration rate decreased [None]

NARRATIVE: CASE EVENT DATE: 20240402
